FAERS Safety Report 12499807 (Version 2)
Quarter: 2017Q1

REPORT INFORMATION
  Report Type: Report from Study
  Country: BR (occurrence: BR)
  Receive Date: 20160627
  Receipt Date: 20170125
  Transmission Date: 20170428
  Serious: Yes (Other)
  Sender: FDA-Public Use
  Company Number: BR-JNJFOC-20160316978

PATIENT
  Age: 67 Year
  Sex: Female
  Weight: 62 kg

DRUGS (2)
  1. SIMPONI [Suspect]
     Active Substance: GOLIMUMAB
     Indication: RHEUMATOID ARTHRITIS
     Route: 058
     Dates: start: 20130425
  2. PANTOPRAZOLE [Concomitant]
     Active Substance: PANTOPRAZOLE SODIUM
     Route: 065

REACTIONS (7)
  - Spinal disorder [Unknown]
  - Road traffic accident [Unknown]
  - Osteitis [Unknown]
  - Lumbar vertebral fracture [Unknown]
  - Gastritis [Unknown]
  - Labyrinthitis [Unknown]
  - Influenza [Unknown]

NARRATIVE: CASE EVENT DATE: 201310
